FAERS Safety Report 19045042 (Version 1)
Quarter: 2021Q1

REPORT INFORMATION
  Report Type: Spontaneous
  Country: US (occurrence: US)
  Receive Date: 20210323
  Receipt Date: 20210323
  Transmission Date: 20210420
  Serious: Yes (Other)
  Sender: FDA-Public Use
  Company Number: US-GLAXOSMITHKLINE-US2021GSK067276

PATIENT
  Sex: Male

DRUGS (5)
  1. ZANTAC [Suspect]
     Active Substance: RANITIDINE HYDROCHLORIDE
     Indication: PERFORATED ULCER
     Dosage: 150 MG, QD
     Route: 065
     Dates: start: 199305, end: 201910
  2. RANITIDINE. [Suspect]
     Active Substance: RANITIDINE
     Indication: PERFORATED ULCER
     Dosage: UNK, QD
     Route: 065
     Dates: start: 199801, end: 201301
  3. RANITIDINE CAPSULE [Suspect]
     Active Substance: RANITIDINE
     Indication: PERFORATED ULCER
     Dosage: 150 MG, QD
     Route: 065
     Dates: start: 199305, end: 201910
  4. ZANTAC [Suspect]
     Active Substance: RANITIDINE HYDROCHLORIDE
     Indication: PERFORATED ULCER
     Dosage: 150 MG, QD
     Route: 065
     Dates: start: 199305, end: 201910
  5. RANITIDINE. [Suspect]
     Active Substance: RANITIDINE
     Indication: PERFORATED ULCER
     Dosage: 150 MG, QD
     Route: 065
     Dates: start: 199801, end: 201301

REACTIONS (1)
  - Prostate cancer [Unknown]
